FAERS Safety Report 19152126 (Version 4)
Quarter: 2021Q3

REPORT INFORMATION
  Report Type: Spontaneous
  Country: US (occurrence: US)
  Receive Date: 20210419
  Receipt Date: 20210706
  Transmission Date: 20211014
  Serious: No
  Sender: FDA-Public Use
  Company Number: US-SA-2021SA126372

PATIENT
  Age: 55 Year
  Sex: Male

DRUGS (2)
  1. DUPIXENT [Suspect]
     Active Substance: DUPILUMAB
     Indication: IDIOPATHIC URTICARIA
  2. DUPIXENT [Suspect]
     Active Substance: DUPILUMAB
     Indication: DERMATITIS ATOPIC
     Dosage: 300 MG/ 2 ML, QOW
     Route: 058
     Dates: start: 20210316

REACTIONS (6)
  - Mouth swelling [Unknown]
  - Eye irritation [Unknown]
  - Fatigue [Unknown]
  - Back pain [Unknown]
  - Lacrimation increased [Unknown]
  - Product use in unapproved indication [Unknown]
